FAERS Safety Report 4918852-5 (Version None)
Quarter: 2006Q1

REPORT INFORMATION
  Report Type: 
  Country: None (occurrence: None)
  Receive Date: 20060222
  Receipt Date: 20051003
  Transmission Date: 20060701
  Serious: Yes (Hospitalization)
  Sender: FDA-Public Use
  Company Number: US-MERCK-0510USA02681

PATIENT
  Age: 41 Year
  Sex: Male

DRUGS (8)
  1. VIOXX [Suspect]
     Route: 048
  2. AMOXICILLIN [Concomitant]
     Indication: EAR INFECTION
     Route: 065
  3. ZOLOFT [Concomitant]
     Route: 065
  4. HYDROCHLOROTHIAZIDE [Concomitant]
     Route: 065
  5. GLUCOPHAGE [Concomitant]
     Route: 065
  6. ZANTAC [Concomitant]
     Indication: DYSPEPSIA
     Route: 065
  7. ULTRAM [Concomitant]
     Route: 065
  8. VASOTEC RPD [Concomitant]
     Route: 065

REACTIONS (1)
  - ACUTE MYOCARDIAL INFARCTION [None]
